FAERS Safety Report 18871416 (Version 1)
Quarter: 2021Q1

REPORT INFORMATION
  Report Type: Spontaneous
  Country: US (occurrence: US)
  Receive Date: 20210209
  Receipt Date: 20210209
  Transmission Date: 20210420
  Serious: Yes (Disabling, Other)
  Sender: FDA-Public Use
  Company Number: None

PATIENT
  Age: 44 Year
  Sex: Female
  Weight: 58.05 kg

DRUGS (6)
  1. DILTIAZEM. [Concomitant]
     Active Substance: DILTIAZEM
  2. DEXILANT [Concomitant]
     Active Substance: DEXLANSOPRAZOLE
  3. TESTOSTERONE. [Concomitant]
     Active Substance: TESTOSTERONE
  4. PROGESTERONE. [Concomitant]
     Active Substance: PROGESTERONE
  5. CYCLOBENZAPRINE. [Concomitant]
     Active Substance: CYCLOBENZAPRINE
  6. NP THYROID [Suspect]
     Active Substance: LEVOTHYROXINE\LIOTHYRONINE
     Indication: HYPOTHYROIDISM
     Dosage: ?          QUANTITY:1 TABLET(S);?
     Route: 048
     Dates: start: 20180801, end: 20200518

REACTIONS (5)
  - Goitre [None]
  - Blood pressure increased [None]
  - Hiatus hernia [None]
  - Barrett^s oesophagus [None]
  - Gastrooesophageal reflux disease [None]

NARRATIVE: CASE EVENT DATE: 20200521
